FAERS Safety Report 20009325 (Version 1)
Quarter: 2021Q4

REPORT INFORMATION
  Report Type: Report from Study
  Country: US (occurrence: US)
  Receive Date: 20211028
  Receipt Date: 20211028
  Transmission Date: 20220303
  Serious: Yes (Other)
  Sender: FDA-Public Use
  Company Number: US-BAYER-2021-167690

PATIENT
  Age: 64 Year
  Sex: Female

DRUGS (4)
  1. STIVARGA [Suspect]
     Active Substance: REGORAFENIB
     Indication: Appendix cancer
     Dosage: 160 MG DAILY FOR 21DAYS AND 7 DAYS OFF
     Route: 048
     Dates: start: 20210625
  2. STIVARGA [Suspect]
     Active Substance: REGORAFENIB
     Indication: Appendix cancer
     Dosage: 80 MG, QD
  3. STIVARGA [Suspect]
     Active Substance: REGORAFENIB
     Indication: Appendix cancer
     Dosage: 160 MG, QD
     Route: 048
     Dates: end: 20211007
  4. MOUTH WASH [Concomitant]
     Indication: Candida infection
     Dosage: UNK

REACTIONS (15)
  - Appendix cancer [Not Recovered/Not Resolved]
  - Sinusitis [Not Recovered/Not Resolved]
  - Neuropathy peripheral [None]
  - Blood pressure increased [Not Recovered/Not Resolved]
  - Diarrhoea [Not Recovered/Not Resolved]
  - Constipation [Not Recovered/Not Resolved]
  - Candida infection [Recovered/Resolved]
  - Skin lesion [Not Recovered/Not Resolved]
  - Dysphagia [None]
  - Stomatitis [None]
  - Oral mucosal blistering [None]
  - Skin lesion [None]
  - Dry skin [Recovering/Resolving]
  - Dry skin [None]
  - Skin exfoliation [None]

NARRATIVE: CASE EVENT DATE: 20210629
